FAERS Safety Report 22361774 (Version 1)
Quarter: 2023Q2

REPORT INFORMATION
  Report Type: Report from Study
  Country: NL (occurrence: NL)
  Receive Date: 20230524
  Receipt Date: 20230524
  Transmission Date: 20230722
  Serious: Yes (Death, Hospitalization)
  Sender: FDA-Public Use
  Company Number: NL-JNJFOC-20230551172

PATIENT

DRUGS (2)
  1. UPTRAVI [Suspect]
     Active Substance: SELEXIPAG
     Indication: Pulmonary arterial hypertension
     Route: 048
  2. UPTRAVI [Suspect]
     Active Substance: SELEXIPAG
     Indication: Right-to-left cardiac shunt

REACTIONS (14)
  - Sudden cardiac death [Fatal]
  - Cardiac failure [Fatal]
  - Arrhythmia supraventricular [Unknown]
  - Haemoptysis [Unknown]
  - Oxygen saturation decreased [Unknown]
  - Headache [Unknown]
  - Myalgia [Unknown]
  - Diarrhoea [Unknown]
  - Nausea [Unknown]
  - Pain in jaw [Unknown]
  - Flushing [Unknown]
  - Arthralgia [Unknown]
  - Hypotension [Unknown]
  - Vomiting [Unknown]
